FAERS Safety Report 4927653-3 (Version None)
Quarter: 2006Q1

REPORT INFORMATION
  Report Type: 
  Country: None (occurrence: None)
  Receive Date: 20060228
  Receipt Date: 20030814
  Transmission Date: 20060701
  Serious: Yes (Death, Hospitalization, Other)
  Sender: FDA-Public Use
  Company Number: US-MERCK-0308USA01618

PATIENT
  Age: 78 Year
  Sex: Female
  Weight: 55 kg

DRUGS (9)
  1. VIOXX [Suspect]
     Indication: PAIN
     Route: 048
     Dates: start: 20000131, end: 20010514
  2. ZOLOFT [Concomitant]
     Route: 065
  3. NORVASC [Concomitant]
     Route: 065
  4. LANOXIN [Concomitant]
     Route: 065
  5. PRIMIDONE [Concomitant]
     Route: 065
  6. CLONAZEPAM [Concomitant]
     Route: 065
  7. VASOTEC RPD [Concomitant]
     Route: 048
  8. CENTRUM SILVER [Concomitant]
     Route: 065
  9. EMLA [Concomitant]
     Route: 065

REACTIONS (13)
  - ARTERIOSCLEROSIS [None]
  - ATRIAL FIBRILLATION [None]
  - CARDIAC DISORDER [None]
  - CEREBRAL INFARCTION [None]
  - CONSTIPATION [None]
  - DEATH [None]
  - EPIGASTRIC DISCOMFORT [None]
  - GASTROINTESTINAL HAEMORRHAGE [None]
  - GASTROOESOPHAGEAL REFLUX DISEASE [None]
  - HEADACHE [None]
  - HUMERUS FRACTURE [None]
  - HYPOKALAEMIA [None]
  - PNEUMONITIS [None]
